FAERS Safety Report 19271958 (Version 1)
Quarter: 2021Q2

REPORT INFORMATION
  Report Type: Spontaneous
  Country: US (occurrence: US)
  Receive Date: 20210519
  Receipt Date: 20210519
  Transmission Date: 20210717
  Serious: No
  Sender: FDA-Public Use
  Company Number: US-SA-2021SA162020

PATIENT
  Age: 20 Year
  Sex: Female

DRUGS (1)
  1. DUPIXENT [Suspect]
     Active Substance: DUPILUMAB
     Indication: DERMATITIS ATOPIC
     Dosage: 300 MG, QOW
     Route: 058
     Dates: start: 20210201

REACTIONS (5)
  - Back pain [Unknown]
  - Erythema [Unknown]
  - Pain [Unknown]
  - Rash pustular [Unknown]
  - Arthralgia [Unknown]

NARRATIVE: CASE EVENT DATE: 20210510
